FAERS Safety Report 7651507-5 (Version None)
Quarter: 2011Q3

REPORT INFORMATION
  Report Type: 
  Country: None (occurrence: None)
  Receive Date: 20110802
  Receipt Date: 20110725
  Transmission Date: 20111222
  Serious: Yes (Other)
  Sender: FDA-Public Use
  Company Number: PHHY2011CA67159

PATIENT
  Sex: Female
  Weight: 50 kg

DRUGS (6)
  1. EVISTA [Concomitant]
     Indication: OSTEOPOROSIS
     Dosage: 670 MG, UNK (DAILY)
  2. FORTEO [Concomitant]
     Indication: OSTEOPOROSIS
     Dosage: 20 MG, UNK (DAILY)
  3. VITAMIN D [Concomitant]
     Indication: OSTEOPOROSIS
     Dosage: UNK (400/500) IU, BID
     Dates: start: 20060101
  4. DIDROCAL [Concomitant]
     Indication: OSTEOPOROSIS
     Dosage: 400 MG, UNK (DAILY)
  5. MIACALCIN [Concomitant]
     Indication: OSTEOPOROSIS
     Dosage: 200 IU, UNK (DAILY)
  6. ZOLEDRONOC ACID [Suspect]
     Indication: OSTEOPOROSIS
     Dosage: 5 MG, UNK (ANUALLY)
     Route: 042
     Dates: start: 20090621

REACTIONS (3)
  - FALL [None]
  - STERNAL FRACTURE [None]
  - RIB FRACTURE [None]
